FAERS Safety Report 5230089-1 (Version None)
Quarter: 2007Q1

REPORT INFORMATION
  Report Type: 
  Country: None (occurrence: None)
  Receive Date: 20070206
  Receipt Date: 20060615
  Transmission Date: 20070707
  Serious: No
  Sender: FDA-Public Use
  Company Number: US-GLAXOSMITHKLINE-A0609142A

PATIENT
  Age: 58 Year
  Sex: Female

DRUGS (6)
  1. PAXIL CR [Suspect]
     Indication: PANIC DISORDER
     Dosage: 12.5MG PER DAY
     Route: 048
  2. SYNTHROID [Concomitant]
  3. ESTRACE [Concomitant]
  4. FOLIC ACID [Concomitant]
  5. WELCHOL [Concomitant]
  6. ASPIRIN [Concomitant]

REACTIONS (1)
  - PAIN IN EXTREMITY [None]
